FAERS Safety Report 4802158-9 (Version None)
Quarter: 2005Q4

REPORT INFORMATION
  Report Type: 
  Country: None (occurrence: None)
  Receive Date: 20051018
  Receipt Date: 20051006
  Transmission Date: 20060501
  Serious: Yes (Other)
  Sender: FDA-Public Use
  Company Number: 200517168US

PATIENT
  Age: 80 Year
  Sex: Male
  Weight: 77.1 kg

DRUGS (9)
  1. AMARYL [Suspect]
     Route: 048
     Dates: start: 20040101, end: 20050101
  2. PLAVIX [Suspect]
     Route: 048
     Dates: start: 20050101
  3. ATIVAN [Concomitant]
     Dosage: DOSE: UNKNOWN
     Route: 048
  4. TIAZAC [Concomitant]
     Dosage: DOSE: UNKNOWN
     Route: 048
  5. LIPITOR [Concomitant]
     Dosage: DOSE: UNKNOWN
     Route: 048
  6. PREVACID [Concomitant]
     Route: 048
  7. FLOMAX [Concomitant]
     Dosage: DOSE: UNKNOWN
  8. ALBUTEROL [Concomitant]
     Dosage: DOSE: UNKNOWN
     Route: 055
  9. ASPIRIN [Concomitant]
     Route: 048

REACTIONS (6)
  - BLOOD GLUCOSE DECREASED [None]
  - CEREBROVASCULAR ACCIDENT [None]
  - DIZZINESS [None]
  - DYSPNOEA [None]
  - NAUSEA [None]
  - NERVOUSNESS [None]
